FAERS Safety Report 21290272 (Version 1)
Quarter: 2022Q3

REPORT INFORMATION
  Report Type: Spontaneous
  Country: US (occurrence: US)
  Receive Date: 20220902
  Receipt Date: 20220902
  Transmission Date: 20221027
  Serious: Yes (Other)
  Sender: FDA-Public Use
  Company Number: US-ALLERGAN-2227297US

PATIENT
  Sex: Female

DRUGS (5)
  1. UBRELVY [Suspect]
     Active Substance: UBROGEPANT
     Indication: Migraine
     Dosage: 100 MG, BID
     Route: 048
     Dates: start: 202202
  2. UBRELVY [Suspect]
     Active Substance: UBROGEPANT
     Dosage: 100 MG, 2 CD/MONTH
     Dates: start: 202202
  3. AIMOVIG [Concomitant]
     Active Substance: ERENUMAB-AOOE
     Indication: Migraine
     Route: 013
     Dates: start: 202202
  4. PREDNISONE [Concomitant]
     Active Substance: PREDNISONE
     Indication: Migraine
     Route: 048
     Dates: start: 20220816
  5. NURTEC ODT [Concomitant]
     Active Substance: RIMEGEPANT SULFATE

REACTIONS (4)
  - Ligament rupture [Unknown]
  - Meniscus injury [Unknown]
  - Nausea [Not Recovered/Not Resolved]
  - Therapeutic product effect incomplete [Unknown]

NARRATIVE: CASE EVENT DATE: 20220201
